FAERS Safety Report 24704700 (Version 1)
Quarter: 2024Q4

REPORT INFORMATION
  Report Type: Spontaneous
  Country: FR (occurrence: FR)
  Receive Date: 20241206
  Receipt Date: 20241206
  Transmission Date: 20250114
  Serious: Yes (Death, Hospitalization, Other)
  Sender: ALEXION PHARMACEUTICALS
  Company Number: FR-AstraZeneca-CH-00735619AM

PATIENT
  Age: 84 Year
  Weight: 62 kg

DRUGS (28)
  1. TAGRISSO [Suspect]
     Active Substance: OSIMERTINIB
     Indication: Squamous cell carcinoma
     Dosage: 80 MILLIGRAM, QD
  2. TAGRISSO [Suspect]
     Active Substance: OSIMERTINIB
     Dosage: 80 MILLIGRAM, QD
  3. TAGRISSO [Suspect]
     Active Substance: OSIMERTINIB
     Dosage: 80 MILLIGRAM, QD
  4. TAGRISSO [Suspect]
     Active Substance: OSIMERTINIB
     Dosage: 80 MILLIGRAM, QD
  5. TAGRISSO [Suspect]
     Active Substance: OSIMERTINIB
     Dosage: 120 MILLIGRAM, QD
  6. TAGRISSO [Suspect]
     Active Substance: OSIMERTINIB
     Dosage: 120 MILLIGRAM, QD
  7. TAGRISSO [Suspect]
     Active Substance: OSIMERTINIB
     Dosage: 120 MILLIGRAM, QD
  8. TAGRISSO [Suspect]
     Active Substance: OSIMERTINIB
     Dosage: 120 MILLIGRAM, QD
  9. TAGRISSO [Suspect]
     Active Substance: OSIMERTINIB
     Dosage: 160 MILLIGRAM, QD
  10. TAGRISSO [Suspect]
     Active Substance: OSIMERTINIB
     Dosage: 160 MILLIGRAM, QD
  11. TAGRISSO [Suspect]
     Active Substance: OSIMERTINIB
     Dosage: 160 MILLIGRAM, QD
  12. TAGRISSO [Suspect]
     Active Substance: OSIMERTINIB
     Dosage: 160 MILLIGRAM, QD
  13. TAHOR [Concomitant]
     Active Substance: ATORVASTATIN CALCIUM
     Dosage: 10 MILLIGRAM, UNK
  14. TAHOR [Concomitant]
     Active Substance: ATORVASTATIN CALCIUM
     Dosage: 10 MILLIGRAM, UNK
     Route: 065
  15. GABAPENTIN [Concomitant]
     Active Substance: GABAPENTIN
     Dosage: 30 MILLIGRAM, UNK
  16. GABAPENTIN [Concomitant]
     Active Substance: GABAPENTIN
     Dosage: 30 MILLIGRAM, UNK
     Route: 065
  17. INIPOMP [Concomitant]
     Active Substance: PANTOPRAZOLE SODIUM
     Dosage: 40 MILLIGRAM, UNK
  18. INIPOMP [Concomitant]
     Active Substance: PANTOPRAZOLE SODIUM
     Dosage: 40 MILLIGRAM, UNK
     Route: 065
  19. ELIQUIS [Concomitant]
     Active Substance: APIXABAN
     Dosage: 5 MILLIGRAM, X2
  20. FUROSEMIDE [Concomitant]
     Active Substance: FUROSEMIDE
     Dosage: 40 MILLIGRAM, UNK
  21. FUROSEMIDE [Concomitant]
     Active Substance: FUROSEMIDE
     Dosage: 40 MILLIGRAM, UNK
     Route: 065
  22. VALSARTAN [Concomitant]
     Active Substance: VALSARTAN
     Dosage: 80 MILLIGRAM, UNK
  23. VALSARTAN [Concomitant]
     Active Substance: VALSARTAN
     Dosage: 80 MILLIGRAM, UNK
     Route: 065
  24. HERBALS\SAW PALMETTO [Concomitant]
     Active Substance: HERBALS\SAW PALMETTO
  25. HERBALS\SAW PALMETTO [Concomitant]
     Active Substance: HERBALS\SAW PALMETTO
     Route: 065
  26. XTANDI [Concomitant]
     Active Substance: ENZALUTAMIDE
  27. XTANDI [Concomitant]
     Active Substance: ENZALUTAMIDE
     Route: 065
  28. ENANTONE LP [Concomitant]
     Active Substance: LEUPROLIDE ACETATE
     Indication: Prostatic adenoma

REACTIONS (5)
  - Malignant neoplasm progression [Unknown]
  - Metastases to central nervous system [Unknown]
  - Squamous cell carcinoma [Fatal]
  - Pyrexia [Unknown]
  - Off label use [Unknown]
